FAERS Safety Report 8344664-9 (Version None)
Quarter: 2012Q2

REPORT INFORMATION
  Report Type: 
  Country: None (occurrence: None)
  Receive Date: 20120508
  Receipt Date: 20120501
  Transmission Date: 20120825
  Serious: Yes (Death, Other)
  Sender: FDA-Public Use
  Company Number: DE-JNJFOC-20120506395

PATIENT

DRUGS (3)
  1. DOXORUBICIN HCL [Suspect]
     Indication: HEPATIC CANCER METASTATIC
     Route: 042
  2. LIPIODOL [Suspect]
     Indication: HEPATIC CANCER METASTATIC
     Route: 065
  3. SORAFENIB [Suspect]
     Indication: HEPATIC CANCER METASTATIC
     Route: 065

REACTIONS (3)
  - DEATH [None]
  - ADVERSE DRUG REACTION [None]
  - TOXICITY TO VARIOUS AGENTS [None]
